FAERS Safety Report 5207537-6 (Version None)
Quarter: 2006Q4

REPORT INFORMATION
  Report Type: 
  Country: None (occurrence: None)
  Receive Date: 20061030
  Receipt Date: 20060713
  Transmission Date: 20070319
  Serious: No
  Sender: FDA-Public Use
  Company Number: 2006CT000648

PATIENT
  Age: 47 Year
  Sex: Male
  Weight: 102.5129 kg

DRUGS (13)
  1. VENTAVIS [Suspect]
     Indication: PULMONARY HYPERTENSION
     Dosage: 5 UG; 4- 6X/DAY; INH
     Route: 055
     Dates: start: 20050907
  2. METFORMIN HCL [Concomitant]
  3. PROPAFENONE HCL [Concomitant]
  4. HYDROCHLORIDE [Concomitant]
  5. AVANDIA [Concomitant]
  6. WARFARIN SODIUM [Concomitant]
  7. FUROSEMIDE [Concomitant]
  8. KLOR-CON [Concomitant]
  9. ALTACE [Concomitant]
  10. DARVOCET-N 100 [Concomitant]
  11. IRON [Concomitant]
  12. TORSEMIDE [Concomitant]
  13. ASCORBIC ACID [Concomitant]

REACTIONS (2)
  - MOUTH PLAQUE [None]
  - NAUSEA [None]
